FAERS Safety Report 12784330 (Version 1)
Quarter: 2016Q3

REPORT INFORMATION
  Report Type: Spontaneous
  Country: DE (occurrence: DE)
  Receive Date: 20160927
  Receipt Date: 20160927
  Transmission Date: 20161109
  Serious: Yes (Other)
  Sender: FDA-Public Use
  Company Number: DE-BEH-200711735

PATIENT
  Age: 72 Year
  Sex: Male

DRUGS (7)
  1. ALNA [Concomitant]
     Active Substance: TAMSULOSIN HYDROCHLORIDE
  2. NEXIUM [Concomitant]
     Active Substance: ESOMEPRAZOLE MAGNESIUM
  3. SANDOGLOBULIN [Suspect]
     Active Substance: HUMAN IMMUNOGLOBULIN G
     Dosage: DAILY DOSE QUANTITY: 6, DAILY DOSE UNIT: G
     Route: 042
     Dates: start: 20070117, end: 20070117
  4. SANDOGLOBULIN [Suspect]
     Active Substance: HUMAN IMMUNOGLOBULIN G
     Indication: GUILLAIN-BARRE SYNDROME
     Dosage: DAILY DOSE QUANTITY: 24, DAILY DOSE UNIT: G
     Route: 042
     Dates: start: 20070117, end: 20070117
  5. PREDNIHEXAL [Concomitant]
     Active Substance: PREDNISOLONE ACETATE
  6. VESDIL [Concomitant]
     Active Substance: RAMIPRIL
  7. SINQUAN [Concomitant]
     Active Substance: DOXEPIN HYDROCHLORIDE

REACTIONS (4)
  - Oedema peripheral [Recovered/Resolved]
  - Oedema peripheral [Recovered/Resolved]
  - Angina pectoris [Recovered/Resolved]
  - Rash macular [Recovered/Resolved]

NARRATIVE: CASE EVENT DATE: 20070117
